FAERS Safety Report 5632501-2 (Version None)
Quarter: 2008Q1

REPORT INFORMATION
  Report Type: 
  Country: None (occurrence: None)
  Receive Date: 20080220
  Receipt Date: 20080206
  Transmission Date: 20080703
  Serious: Yes (Hospitalization)
  Sender: FDA-Public Use
  Company Number: US-ELI_LILLY_AND_COMPANY-US200708007103

PATIENT
  Sex: Female
  Weight: 88.435 kg

DRUGS (11)
  1. SOMATROPIN [Suspect]
     Indication: GROWTH HORMONE DEFICIENCY
     Dates: start: 19970901, end: 19980401
  2. SOMATROPIN [Suspect]
     Dosage: 0.4 MG, DAILY (1/D)
     Route: 058
     Dates: start: 19990418, end: 20050501
  3. HYDROCORTISONE [Concomitant]
     Indication: ADRENAL INSUFFICIENCY
     Dosage: 10 MG, 2/D
     Dates: start: 19970101
  4. LEVOXYL [Concomitant]
     Indication: HYPOTHYROIDISM
     Dosage: 0.075 UNK, UNK
     Dates: start: 19970101
  5. DDAVP (NEEDS NO REFRIGERATION) [Concomitant]
     Indication: DIABETES INSIPIDUS
     Dosage: 0.075 MG, UNK
     Route: 042
     Dates: start: 19960801
  6. DDAVP (NEEDS NO REFRIGERATION) [Concomitant]
     Dosage: 1 UG, 2/D
     Dates: start: 20050503
  7. PROMETRIUM [Concomitant]
     Indication: HYPOGONADISM
     Dosage: 200 UNK, UNK
     Dates: start: 20000216
  8. RANITIDINE [Concomitant]
     Indication: ADENOMATOUS POLYPOSIS COLI
     Dates: start: 20000615
  9. CORAL CALCIUM [Concomitant]
     Dates: start: 20040116
  10. VITAMIN B-12 [Concomitant]
     Dates: start: 20041011
  11. VIVELLE-DOT [Concomitant]
     Dosage: 0.1 UNK, UNK

REACTIONS (2)
  - ADENOMATOUS POLYPOSIS COLI [None]
  - DIABETES INSIPIDUS [None]
